FAERS Safety Report 8448492-5 (Version None)
Quarter: 2012Q2

REPORT INFORMATION
  Report Type: 
  Country: None (occurrence: None)
  Receive Date: 20120619
  Receipt Date: 20120521
  Transmission Date: 20120825
  Serious: Yes (Other)
  Sender: FDA-Public Use
  Company Number: US-ROCHE-1077900

PATIENT

DRUGS (6)
  1. CETUXIMAB [Suspect]
     Indication: OESOPHAGEAL ADENOCARCINOMA
     Route: 042
  2. OXALIPLATIN [Suspect]
     Indication: OESOPHAGEAL ADENOCARCINOMA
  3. CETUXIMAB [Suspect]
     Indication: GASTRIC CANCER
     Dosage: LOADING DOSE
     Route: 042
  4. XELODA [Suspect]
     Indication: GASTRIC CANCER
  5. XELODA [Suspect]
     Indication: OESOPHAGEAL ADENOCARCINOMA
  6. OXALIPLATIN [Suspect]
     Indication: GASTRIC CANCER
     Route: 042

REACTIONS (7)
  - VOMITING [None]
  - NAUSEA [None]
  - DECREASED APPETITE [None]
  - FATIGUE [None]
  - PALMAR-PLANTAR ERYTHRODYSAESTHESIA SYNDROME [None]
  - DERMATITIS ACNEIFORM [None]
  - DIARRHOEA [None]
